FAERS Safety Report 19296839 (Version 4)
Quarter: 2021Q3

REPORT INFORMATION
  Report Type: Report from Study
  Country: CO (occurrence: CO)
  Receive Date: 20210524
  Receipt Date: 20210806
  Transmission Date: 20211014
  Serious: Yes (Death, Hospitalization, Other)
  Sender: FDA-Public Use
  Company Number: NVSC2021CO103168

PATIENT
  Sex: Female

DRUGS (2)
  1. KISQALI [Suspect]
     Active Substance: RIBOCICLIB
     Indication: BREAST CANCER METASTATIC
     Dosage: 600 MG, QD
     Route: 048
  2. KISQALI [Suspect]
     Active Substance: RIBOCICLIB
     Dosage: UNK, QD
     Route: 048

REACTIONS (14)
  - Pulmonary thrombosis [Unknown]
  - Chest discomfort [Unknown]
  - Nausea [Unknown]
  - Death [Fatal]
  - Respiratory disorder [Unknown]
  - Chest pain [Unknown]
  - Cough [Unknown]
  - Somnolence [Unknown]
  - Pain [Unknown]
  - Platelet count decreased [Unknown]
  - Vision blurred [Unknown]
  - Decreased immune responsiveness [Unknown]
  - Vertigo [Unknown]
  - Dizziness [Unknown]
